FAERS Safety Report 4503809-9 (Version None)
Quarter: 2004Q4

REPORT INFORMATION
  Report Type: 
  Country: None (occurrence: None)
  Receive Date: 20041117
  Receipt Date: 20041004
  Transmission Date: 20050328
  Serious: Yes (Death, Life-Threatening, Hospitalization)
  Sender: FDA-Public Use
  Company Number: CA-MERCK-0410CAN00079

PATIENT
  Age: 66 Year
  Sex: Male

DRUGS (14)
  1. VIOXX [Suspect]
     Indication: BACK PAIN
     Route: 048
     Dates: start: 20001101
  2. VIOXX [Suspect]
     Indication: ARTHRALGIA
     Route: 048
     Dates: start: 20001101
  3. METFORMIN [Concomitant]
     Indication: DIABETES MELLITUS NON-INSULIN-DEPENDENT
     Route: 065
  4. QUININE SULFATE [Concomitant]
     Indication: MUSCLE CRAMP
     Route: 065
  5. ASPIRIN [Concomitant]
     Indication: HYPERTENSION
     Route: 065
  6. ASPIRIN [Concomitant]
     Indication: HYPERLIPIDAEMIA
     Route: 065
  7. RAMIPRIL [Concomitant]
     Indication: HYPERTENSION
     Route: 065
  8. OMEPRAZOLE MAGNESIUM [Concomitant]
     Indication: GASTROOESOPHAGEAL REFLUX DISEASE
     Route: 048
  9. CYCLOBENZAPRINE HYDROCHLORIDE [Concomitant]
     Indication: BACK PAIN
     Route: 065
  10. MEPERIDINE HYDROCHLORIDE [Concomitant]
     Indication: BACK PAIN
     Route: 065
  11. LORAZEPAM [Concomitant]
     Indication: ANXIETY
     Route: 060
  12. LORAZEPAM [Concomitant]
     Indication: CHEST PAIN
     Route: 060
  13. ATORVASTATIN CALCIUM [Concomitant]
     Indication: HYPERLIPIDAEMIA
     Route: 048
  14. GLYBURIDE [Concomitant]
     Indication: DIABETES MELLITUS NON-INSULIN-DEPENDENT
     Route: 048

REACTIONS (17)
  - ACUTE RESPIRATORY DISTRESS SYNDROME [None]
  - ASPIRATION [None]
  - ASTHMA [None]
  - BODY TEMPERATURE DECREASED [None]
  - BRADYCARDIA [None]
  - BUNDLE BRANCH BLOCK RIGHT [None]
  - CHEST PAIN [None]
  - COLD SWEAT [None]
  - COMA [None]
  - DEHYDRATION [None]
  - DRUG HYPERSENSITIVITY [None]
  - DYSPNOEA [None]
  - EJECTION FRACTION ABNORMAL [None]
  - HAEMORRHAGIC STROKE [None]
  - ISCHAEMIC STROKE [None]
  - RESPIRATORY ARREST [None]
  - TACHYCARDIA [None]
